FAERS Safety Report 10802761 (Version 1)
Quarter: 2015Q1

REPORT INFORMATION
  Report Type: Spontaneous
  Country: GB (occurrence: GB)
  Receive Date: 20150217
  Receipt Date: 20150217
  Transmission Date: 20150721
  Serious: Yes (Hospitalization)
  Sender: FDA-Public Use
  Company Number: PHHY2015GB014919

PATIENT
  Age: 52 Year
  Sex: Female

DRUGS (3)
  1. FUROSEMIDE. [Suspect]
     Active Substance: FUROSEMIDE
     Indication: HYPERCALCAEMIA
     Route: 041
  2. NORMAL SALINE [Suspect]
     Active Substance: SODIUM CHLORIDE
     Indication: HYPERCALCAEMIA
     Route: 041
  3. PAMIDRONATE [Suspect]
     Active Substance: PAMIDRONATE DISODIUM
     Indication: HYPERCALCAEMIA
     Route: 041

REACTIONS (5)
  - Blood calcium increased [Unknown]
  - Fatigue [Unknown]
  - Pain [Unknown]
  - Confusional state [Unknown]
  - Coma [Unknown]
